FAERS Safety Report 5799573-6 (Version None)
Quarter: 2008Q3

REPORT INFORMATION
  Report Type: 
  Country: None (occurrence: None)
  Receive Date: 20080701
  Receipt Date: 20080701
  Transmission Date: 20090109
  Serious: Yes (Hospitalization)
  Sender: FDA-Public Use
  Company Number: None

PATIENT
  Age: 50 Year
  Sex: Male
  Weight: 71.5 kg

DRUGS (11)
  1. TARCEVA [Suspect]
     Indication: LUNG NEOPLASM MALIGNANT
     Dosage: 150 MG DAILY PO
     Route: 048
     Dates: start: 20080624, end: 20080629
  2. ALIMTA [Concomitant]
  3. LOVENOX [Concomitant]
  4. LIALDA [Concomitant]
  5. NEXIUM [Concomitant]
  6. ENTOCOR [Concomitant]
  7. VITAMIN B-12 [Concomitant]
  8. FOLIC ACID [Concomitant]
  9. TYLENOL [Concomitant]
  10. AMBIEN CR [Concomitant]
  11. VARIOUS HERBAL SUPPLEMENTS [Concomitant]

REACTIONS (7)
  - ABDOMINAL PAIN [None]
  - DEHYDRATION [None]
  - DIARRHOEA [None]
  - FLUID INTAKE REDUCED [None]
  - FOOD INTOLERANCE [None]
  - NAUSEA [None]
  - VOMITING [None]
